FAERS Safety Report 9882414 (Version 2)
Quarter: 2014Q1

REPORT INFORMATION
  Report Type: Spontaneous
  Country: PT (occurrence: PT)
  Receive Date: 20140207
  Receipt Date: 20140226
  Transmission Date: 20141002
  Serious: Yes (Hospitalization)
  Sender: FDA-Public Use
  Company Number: PT-PFIZER INC-2014034322

PATIENT
  Age: 53 Year
  Sex: Male

DRUGS (7)
  1. VENLAFAXINE HCL [Suspect]
     Indication: DEPRESSION
     Dosage: UNK
     Dates: start: 20021014
  2. LORAZEPAM [Suspect]
     Indication: DEPRESSION
     Dosage: UNK
     Dates: start: 20021014
  3. PRIADEL [Suspect]
     Indication: BIPOLAR DISORDER
     Dosage: UNK, 2X/DAY
     Dates: start: 1999
  4. PRIADEL [Suspect]
     Dosage: 400 MG, 2X/DAY
  5. METAMIDOL [Suspect]
     Dosage: 5 MG, 1X/DAY
  6. SEROXAT [Suspect]
     Indication: DEPRESSION
     Dosage: UNK, 2X/DAY
     Dates: start: 20021014
  7. TRAZODONE [Suspect]
     Indication: DEPRESSION
     Dosage: UNK
     Dates: start: 20021014

REACTIONS (1)
  - Toxicity to various agents [Recovered/Resolved]
